FAERS Safety Report 22638961 (Version 1)
Quarter: 2023Q2

REPORT INFORMATION
  Report Type: Spontaneous
  Country: TR (occurrence: TR)
  Receive Date: 20230626
  Receipt Date: 20230626
  Transmission Date: 20230721
  Serious: Yes (Hospitalization)
  Sender: FDA-Public Use
  Company Number: TR-002147023-NVSC2023TR143271

PATIENT
  Age: 43 Year
  Sex: Male

DRUGS (1)
  1. METHOTREXATE [Suspect]
     Active Substance: METHOTREXATE
     Indication: Morphoea
     Dosage: 15 MG, ONCE WEEKLY, RECEIVED 7 DOSES
     Route: 058

REACTIONS (2)
  - Leukoencephalopathy [Recovering/Resolving]
  - Product use in unapproved indication [Unknown]
